FAERS Safety Report 10102366 (Version 2)
Quarter: 2014Q2

REPORT INFORMATION
  Report Type: Report from Study
  Country: US (occurrence: US)
  Receive Date: 20140424
  Receipt Date: 20140507
  Transmission Date: 20141212
  Serious: Yes (Hospitalization, Other)
  Sender: FDA-Public Use
  Company Number: PHEH2014US007899

PATIENT
  Sex: Male
  Weight: 120 kg

DRUGS (12)
  1. GLEEVEC [Suspect]
     Indication: CHRONIC MYELOID LEUKAEMIA
     Dosage: UNK UKN, UNK
  2. SPRYCEL//DASATINIB [Suspect]
     Dosage: UNK UKN, UNK
  3. PREDNISONE [Concomitant]
     Dosage: UNK UKN, UNK
  4. CRESTOR [Concomitant]
     Dosage: UNK UKN, UNK
  5. ADVAIR DISKUS [Concomitant]
     Dosage: UNK UKN, 1 PUFF BID
     Route: 055
  6. ALBUTEROL [Concomitant]
     Dosage: UNK UKN, UNK
  7. METOPROLOL [Concomitant]
     Dosage: 25 MG, BID
  8. LOSARTAN [Concomitant]
     Dosage: 50 MG, DAILY
  9. OXYCONTIN [Concomitant]
     Dosage: UNK UKN, UNK
     Route: 048
  10. SPIRIVA HANDIHALER [Concomitant]
     Dosage: UNK UKN, UNK
     Route: 055
  11. TRILIPIX [Concomitant]
     Dosage: UNK UKN, UNK
  12. CHANTIX [Concomitant]
     Dosage: UNK UKN, UNK

REACTIONS (22)
  - Pleural effusion [Unknown]
  - Dyspnoea [Not Recovered/Not Resolved]
  - Productive cough [Unknown]
  - Oedema peripheral [Unknown]
  - Oedema [Unknown]
  - Atelectasis [Unknown]
  - Mitral valve incompetence [Unknown]
  - Chronic obstructive pulmonary disease [Unknown]
  - Bronchitis chronic [Unknown]
  - Acute coronary syndrome [Unknown]
  - H1N1 influenza [Unknown]
  - Pneumonia [Unknown]
  - Cardiac failure congestive [Unknown]
  - Myocardial infarction [Unknown]
  - Diastolic dysfunction [Unknown]
  - Sepsis [Unknown]
  - Cholelithiasis [Unknown]
  - Hypoxia [Unknown]
  - Tachypnoea [Unknown]
  - Emotional distress [Unknown]
  - Nasopharyngitis [Unknown]
  - Anxiety [Unknown]
